FAERS Safety Report 5052172-6 (Version None)
Quarter: 2006Q3

REPORT INFORMATION
  Report Type: 
  Country: None (occurrence: None)
  Receive Date: 20060712
  Receipt Date: 20060712
  Transmission Date: 20061208
  Serious: Yes (Hospitalization)
  Sender: FDA-Public Use
  Company Number: None

PATIENT
  Age: 56 Year
  Sex: Male
  Weight: 63.5 kg

DRUGS (15)
  1. ENOXAPARIN SODIUM [Suspect]
     Dosage: 60MG,Q12H, SUBCUTAN
     Route: 058
     Dates: start: 20051003, end: 20051005
  2. ENOXAPARIN SODIUM [Suspect]
     Dosage: 80MG, Q12H, SUBCUTANEOUS
     Dates: start: 20051005, end: 20051009
  3. WARFARIN NA (COUMADIN) [Concomitant]
  4. FELODIPINE [Concomitant]
  5. DIPHENHYDRAMINE ELIXIR [Concomitant]
  6. THIAMINE HCL [Concomitant]
  7. MULTIVITAMIN [Concomitant]
  8. FOLIC ACID [Concomitant]
  9. PAROXETINE HCL (PAXIL) [Concomitant]
  10. FERROUS SULFATE TAB [Concomitant]
  11. ASCORBIC ACID [Concomitant]
  12. PRILOSEC [Concomitant]
  13. NICOTINE [Concomitant]
  14. SODIUM BICARBONATE [Concomitant]
  15. ACETAMINOPHEN [Concomitant]

REACTIONS (1)
  - ABDOMINAL PAIN [None]
